FAERS Safety Report 10913883 (Version 2)
Quarter: 2017Q1

REPORT INFORMATION
  Report Type: Spontaneous
  Country: US (occurrence: US)
  Receive Date: 20150313
  Receipt Date: 20170323
  Transmission Date: 20170428
  Serious: Yes (Other)
  Sender: FDA-Public Use
  Company Number: US-ELI_LILLY_AND_COMPANY-US201503000501

PATIENT
  Age: 49 Year
  Sex: Female

DRUGS (2)
  1. CYMBALTA [Suspect]
     Active Substance: DULOXETINE HYDROCHLORIDE
     Indication: ANXIETY
     Dosage: UNK, UNK
     Dates: start: 201301, end: 201303
  2. CYMBALTA [Suspect]
     Active Substance: DULOXETINE HYDROCHLORIDE
     Indication: PANIC ATTACK

REACTIONS (19)
  - Decreased appetite [Unknown]
  - Hypoaesthesia [Unknown]
  - Drug withdrawal syndrome [Unknown]
  - Agitation [Unknown]
  - Apathy [Unknown]
  - Anxiety [Unknown]
  - Insomnia [Unknown]
  - Hypersomnia [Unknown]
  - Hyperhidrosis [Unknown]
  - Lethargy [Unknown]
  - Irritability [Unknown]
  - Nightmare [Unknown]
  - Fatigue [Unknown]
  - Paraesthesia [Unknown]
  - Mood swings [Unknown]
  - Sensory disturbance [Unknown]
  - Dry mouth [Unknown]
  - Depression [Unknown]
  - Nausea [Unknown]

NARRATIVE: CASE EVENT DATE: 201303
